FAERS Safety Report 15881091 (Version 1)
Quarter: 2019Q1

REPORT INFORMATION
  Report Type: Spontaneous
  Country: ES (occurrence: ES)
  Receive Date: 20190128
  Receipt Date: 20190128
  Transmission Date: 20190417
  Serious: Yes (Other)
  Sender: FDA-Public Use
  Company Number: ES-PFIZER INC-2019032581

PATIENT
  Age: 60 Year
  Sex: Male

DRUGS (5)
  1. IMATINIB. [Suspect]
     Active Substance: IMATINIB MESYLATE
     Indication: CHRONIC MYELOID LEUKAEMIA
     Dosage: UNK
  2. BOSUTINIB [Suspect]
     Active Substance: BOSUTINIB
     Dosage: UNK
  3. PONATINIB [Suspect]
     Active Substance: PONATINIB
     Dosage: 15 MG, UNK
  4. NILOTINIB [Suspect]
     Active Substance: NILOTINIB
     Indication: CHRONIC MYELOID LEUKAEMIA
     Dosage: 300 MG, 1X/DAY (150 MG, 2X/DAY)
  5. DASATINIB. [Suspect]
     Active Substance: DASATINIB
     Dosage: UNK

REACTIONS (6)
  - Myositis [Unknown]
  - Cytogenetic analysis abnormal [Unknown]
  - Drug intolerance [Unknown]
  - Abdominal pain [Unknown]
  - Treatment failure [Unknown]
  - Hepatotoxicity [Unknown]
